FAERS Safety Report 8050017-3 (Version None)
Quarter: 2012Q1

REPORT INFORMATION
  Report Type: 
  Country: None (occurrence: None)
  Receive Date: 20120117
  Receipt Date: 20120113
  Transmission Date: 20120608
  Serious: Yes (Other)
  Sender: FDA-Public Use
  Company Number: US-BAYER-2012-004637

PATIENT
  Sex: Female

DRUGS (1)
  1. MIRENA [Suspect]
     Indication: HORMONE THERAPY
     Dosage: 20 MCG/24HR, CONT
     Dates: start: 20111005

REACTIONS (3)
  - FUNGAL INFECTION [None]
  - HEADACHE [None]
  - AMENORRHOEA [None]
